FAERS Safety Report 5268299-X (Version None)
Quarter: 2007Q1

REPORT INFORMATION
  Report Type: 
  Country: None (occurrence: None)
  Receive Date: 20070314
  Receipt Date: 20070314
  Transmission Date: 20070707
  Serious: Yes (Hospitalization)
  Sender: FDA-Public Use
  Company Number: None

PATIENT
  Age: 52 Year
  Sex: Male
  Weight: 66.5 kg

DRUGS (2)
  1. GEMCITABINE [Suspect]
     Indication: NASOPHARYNGEAL CANCER
     Dosage: 1710 MG  D1 + D8  IV
     Route: 042
     Dates: start: 20070227
  2. PS341 [Suspect]
     Indication: NASOPHARYNGEAL CANCER
     Dosage: 2.2 MG  D1, D4, D8, D11  IV
     Route: 042
     Dates: start: 20070227

REACTIONS (4)
  - PNEUMONIA ASPIRATION [None]
  - SERRATIA INFECTION [None]
  - SPUTUM CULTURE POSITIVE [None]
  - UPPER RESPIRATORY TRACT INFECTION [None]
